FAERS Safety Report 9796749 (Version 2)
Quarter: 2014Q1

REPORT INFORMATION
  Report Type: Spontaneous
  Country: TR (occurrence: TR)
  Receive Date: 20140103
  Receipt Date: 20140109
  Transmission Date: 20141002
  Serious: Yes (Other)
  Sender: FDA-Public Use
  Company Number: TR-ABBVIE-13P-161-1184828-00

PATIENT
  Age: 36 Year
  Sex: Female

DRUGS (2)
  1. VALPROATE SODIUM [Suspect]
     Indication: BIPOLAR DISORDER
     Dosage: FREQUENCY UNKNOWN
     Route: 065
  2. RISPERIDONE [Concomitant]
     Indication: BIPOLAR DISORDER

REACTIONS (5)
  - Alkalosis hypokalaemic [Recovered/Resolved]
  - Hyperammonaemic encephalopathy [Recovered/Resolved]
  - Lethargy [Unknown]
  - Delirium [Recovered/Resolved]
  - Apathy [Unknown]
